FAERS Safety Report 11805237 (Version 2)
Quarter: 2019Q4

REPORT INFORMATION
  Report Type: Spontaneous
  Country: DE (occurrence: DE)
  Receive Date: 20151206
  Receipt Date: 20191121
  Transmission Date: 20200122
  Serious: Yes (Congenital Anomaly)
  Sender: FDA-Public Use
  Company Number: DE-MYLANLABS-2015M1042184

PATIENT
  Age: 1 Day
  Sex: Male
  Weight: 3.98 kg

DRUGS (6)
  1. NOVOPULMON [Suspect]
     Active Substance: BUDESONIDE
     Dosage: 0.4 MG, 2X/DAY (BID)
     Route: 064
     Dates: start: 20141011, end: 201507
  2. BERODUAL F [Concomitant]
     Indication: ASTHMA
     Dosage: 0.1 [MG/D ] / 0.04 [MG/D ]/ ON DEMAND
     Route: 064
     Dates: start: 20140927, end: 20150717
  3. LEVETIRACETAM. [Suspect]
     Active Substance: LEVETIRACETAM
     Dosage: 500 MG, 2X/DAY
     Route: 064
     Dates: start: 20141011, end: 201507
  4. NOVOPULMON [Suspect]
     Active Substance: BUDESONIDE
     Indication: ASTHMA
     Dosage: 0.4 MG, BID (0.8 [MG/D ])
     Route: 064
     Dates: start: 20140927, end: 20150717
  5. BERODUAL F [Concomitant]
     Dosage: 0.1 [MG/D ] / 0.04 [MG/D ]
     Route: 064
     Dates: start: 20141011, end: 201507
  6. LEVETIRACETAM. [Suspect]
     Active Substance: LEVETIRACETAM
     Indication: EPILEPSY
     Dosage: 500 MG, 2X/DAY (BID)
     Route: 064
     Dates: start: 20140927, end: 20150717

REACTIONS (3)
  - Congenital hydronephrosis [Not Recovered/Not Resolved]
  - Pancreatic cyst [Not Recovered/Not Resolved]
  - Foetal exposure during pregnancy [Recovered/Resolved]

NARRATIVE: CASE EVENT DATE: 20141011
